FAERS Safety Report 25937872 (Version 4)
Quarter: 2025Q4

REPORT INFORMATION
  Report Type: Report from Study
  Country: EU (occurrence: EU)
  Receive Date: 20251018
  Receipt Date: 20251210
  Transmission Date: 20260117
  Serious: Yes (Hospitalization)
  Sender: ABBVIE
  Company Number: EU-ABBVIE-6506913

PATIENT
  Age: 73 Year
  Sex: Male

DRUGS (12)
  1. FOSCARBIDOPA\FOSLEVODOPA [Suspect]
     Active Substance: FOSCARBIDOPA\FOSLEVODOPA
     Indication: Parkinson^s disease
     Dosage: CRN: 0.33 ML/H, CR: 0.42 ML/H, CRH: 0.44 ML/H, ED: NOT SPECIFIED.
     Route: 058
     Dates: start: 20240506
  2. FOSCARBIDOPA\FOSLEVODOPA [Suspect]
     Active Substance: FOSCARBIDOPA\FOSLEVODOPA
     Dosage: (SD: 0.60 ML), CRN: 0.33 ML/H, CR: 0.42 ML/H, CRH: 0.44 ML/H, ED: 0.30 ML.
     Route: 058
  3. FOSCARBIDOPA\FOSLEVODOPA [Suspect]
     Active Substance: FOSCARBIDOPA\FOSLEVODOPA
     Dosage: BASELINE RATE 0.4 ML/H, STARTING DOSE 0.6 ML, EXTRA DOSE 0.3 ML, LOCKOUT PERIOD 1 H?LOW RATE 0.33...
     Route: 058
  4. Iodide [Concomitant]
     Indication: Product used for unknown indication
     Dosage: MORNING : 150
  5. AMANTADINE [Concomitant]
     Active Substance: AMANTADINE
     Indication: Product used for unknown indication
     Dosage: 100-100-0-0 (MG)
  6. POTASSIUM IODIDE [Concomitant]
     Active Substance: POTASSIUM IODIDE
     Indication: Product used for unknown indication
     Dosage: 150-0-0-0 (UG)
  7. BENSERAZIDE\LEVODOPA [Concomitant]
     Active Substance: BENSERAZIDE\LEVODOPA
     Indication: Product used for unknown indication
     Dosage: 100/25 (MG) H (UNITS)): 1.50-07:30, 1.50-09:30, 1.50-11:30, 1.50-13:30, 5.00-15:30, :1,50-17:#0, ...
  8. CARBIDOPA\LEVODOPA [Concomitant]
     Active Substance: CARBIDOPA\LEVODOPA
     Indication: Product used for unknown indication
     Dosage: 100/25 MG) EXTENDED-RELEASE TABLETS 0-0-0-2 (UNITS)
  9. LEVOTHYROXINE [Concomitant]
     Active Substance: LEVOTHYROXINE
     Indication: Product used for unknown indication
     Dosage: 50-0-0-0 (?G)
  10. OPICAPONE [Concomitant]
     Active Substance: OPICAPONE
     Indication: Product used for unknown indication
     Dosage: 0-0-0-50 (MG)
  11. QUETIAPINE [Concomitant]
     Active Substance: QUETIAPINE
     Indication: Product used for unknown indication
     Dosage: 0-0-0-50 (MG)
  12. TAMSULOSIN [Concomitant]
     Active Substance: TAMSULOSIN
     Indication: Product used for unknown indication
     Dosage: 0-0.04-0 (MG)

REACTIONS (12)
  - Intestinal operation [Unknown]
  - Fatigue [Not Recovered/Not Resolved]
  - Hypokinesia [Not Recovered/Not Resolved]
  - Infusion site mass [Not Recovered/Not Resolved]
  - Balance disorder [Unknown]
  - Cognitive disorder [Unknown]
  - Nightmare [Unknown]
  - Speech disorder [Unknown]
  - Posture abnormal [Unknown]
  - Dysphonia [Unknown]
  - Torticollis [Unknown]
  - Dysarthria [Unknown]

NARRATIVE: CASE EVENT DATE: 20250101
